FAERS Safety Report 8934252 (Version 1)
Quarter: 2012Q4

REPORT INFORMATION
  Report Type: 
  Country: US (occurrence: US)
  Receive Date: 20121129
  Receipt Date: 20121129
  Transmission Date: 20130627
  Serious: No
  Sender: FDA-Public Use
  Company Number: US-VERTEX PHARMACEUTICAL INC.-2012-025137

PATIENT
  Age: 56 Year
  Sex: Female
  Weight: 66 kg

DRUGS (11)
  1. INCIVEK [Suspect]
     Indication: HEPATITIS C
     Dosage: 750 mg, tid
     Route: 048
     Dates: start: 20120615, end: 20120720
  2. RIBAVIRIN [Suspect]
     Indication: HEPATITIS C
     Dosage: 400 mg qam and 600 mg qpm
     Route: 048
     Dates: start: 20120615, end: 20120720
  3. PEGASYS [Suspect]
     Indication: HEPATITIS C
     Dosage: 180 ?g, weekly
     Route: 058
     Dates: start: 20120615, end: 20120720
  4. PREDNISONE [Concomitant]
     Dosage: 2 mg, qd
     Route: 048
  5. VITAMIN D /00107901/ [Concomitant]
  6. PROBIOTICS [Concomitant]
  7. WELLBUTRIN [Concomitant]
     Dosage: 150 mg, qd
     Route: 048
  8. EVOXAC [Concomitant]
     Dosage: 30 mg, tid
     Route: 048
  9. LEVOTHYROXINE [Concomitant]
     Dosage: 50 ?g, qd
     Route: 048
  10. RESTASIS [Concomitant]
     Dosage: UNK, bid
  11. NEXIUM                             /01479302/ [Concomitant]
     Dosage: UNK, prn

REACTIONS (9)
  - Blood alkaline phosphatase increased [Recovered/Resolved]
  - Aspartate aminotransferase increased [Recovered/Resolved]
  - Alanine aminotransferase increased [Recovered/Resolved]
  - Influenza like illness [Recovered/Resolved]
  - Asthenia [Recovered/Resolved]
  - Fatigue [Recovered/Resolved]
  - Blood bilirubin increased [Recovered/Resolved]
  - Bilirubin conjugated increased [Recovered/Resolved]
  - Drug ineffective [Not Recovered/Not Resolved]
